APPROVED DRUG PRODUCT: SILDENAFIL CITRATE
Active Ingredient: SILDENAFIL CITRATE
Strength: EQ 10MG BASE/ML
Dosage Form/Route: FOR SUSPENSION;ORAL
Application: A211534 | Product #001 | TE Code: AB
Applicant: TEVA PHARMACEUTICALS USA
Approved: May 29, 2020 | RLD: No | RS: No | Type: RX